FAERS Safety Report 9797705 (Version 1)
Quarter: 2014Q1

REPORT INFORMATION
  Report Type: Spontaneous
  Country: US (occurrence: US)
  Receive Date: 20140106
  Receipt Date: 20140106
  Transmission Date: 20141002
  Serious: No
  Sender: FDA-Public Use
  Company Number: US-PFIZER INC-2014002039

PATIENT
  Sex: Male

DRUGS (2)
  1. GABAPENTIN [Suspect]
     Indication: PAIN
     Dosage: 3000 MG, UNK
  2. LYRICA [Concomitant]
     Indication: NEURALGIA
     Dosage: 600 MG, UNK

REACTIONS (1)
  - Fibrinous bronchitis [Unknown]
